FAERS Safety Report 8845394 (Version 1)
Quarter: 2012Q4

REPORT INFORMATION
  Report Type: Report from Study
  Country: US (occurrence: US)
  Receive Date: 20121017
  Receipt Date: 20121017
  Transmission Date: 20130627
  Serious: Yes (Hospitalization)
  Sender: FDA-Public Use
  Company Number: US-VERTEX PHARMACEUTICAL INC.-2012-022897

PATIENT
  Age: 57 Year
  Sex: Male
  Weight: 95 kg

DRUGS (7)
  1. VX-950 [Suspect]
     Indication: HEPATITIS C
     Dosage: 1125 mg, UNK
     Route: 048
     Dates: start: 20120913
  2. RIBAVIRIN [Suspect]
     Indication: HEPATITIS C
     Dosage: UNK
     Route: 048
     Dates: start: 20120913
  3. RIBAVIRIN [Suspect]
     Dosage: 600 mg, UNK
     Route: 048
  4. Z-PEGYLATED INTERFERON-2A [Suspect]
     Indication: HEPATITIS C
     Dosage: 180 ?g, UNK
     Route: 058
     Dates: start: 20120913
  5. ASA [Concomitant]
     Indication: HEADACHE
     Dosage: UNK
     Dates: start: 20121011
  6. SALINE                             /00075401/ [Concomitant]
     Dosage: UNK
     Dates: start: 20121011
  7. TYLENOL /00020001/ [Concomitant]
     Indication: HEADACHE
     Dosage: UNK
     Dates: start: 20121011

REACTIONS (2)
  - Syncope [Not Recovered/Not Resolved]
  - Anaemia [None]
